FAERS Safety Report 9893358 (Version 3)
Quarter: 2014Q1

REPORT INFORMATION
  Report Type: Report from Study
  Country: CA (occurrence: CA)
  Receive Date: 20140213
  Receipt Date: 20140325
  Transmission Date: 20141002
  Serious: Yes (Other)
  Sender: FDA-Public Use
  Company Number: CA-ROCHE-1348214

PATIENT
  Age: 48 Year
  Sex: Female

DRUGS (9)
  1. HERCEPTIN [Suspect]
     Indication: BREAST CANCER
     Route: 042
     Dates: start: 2012, end: 201310
  2. XELODA [Suspect]
     Indication: BREAST CANCER
     Route: 048
     Dates: start: 201111, end: 2013
  3. PERJETA [Suspect]
     Indication: BREAST CANCER METASTATIC
     Route: 042
     Dates: start: 20140305
  4. MEMANTINE [Concomitant]
     Route: 065
     Dates: start: 201309
  5. ESOMEPRAZOLE [Concomitant]
     Route: 065
     Dates: start: 201309
  6. DEXAMETHASONE [Concomitant]
     Route: 065
     Dates: start: 201401
  7. DALMACOL [Concomitant]
     Route: 065
     Dates: start: 201401
  8. NISTATINA [Concomitant]
     Route: 065
     Dates: start: 201401
  9. TYKERB [Concomitant]
     Route: 065
     Dates: start: 2013

REACTIONS (6)
  - Disease progression [Unknown]
  - Red blood cell count increased [Unknown]
  - Haematocrit increased [Unknown]
  - Neutrophil count increased [Unknown]
  - Lymphocyte count decreased [Unknown]
  - Urticaria [Unknown]
